FAERS Safety Report 25551166 (Version 1)
Quarter: 2025Q3

REPORT INFORMATION
  Report Type: Spontaneous
  Country: CA (occurrence: CA)
  Receive Date: 20250714
  Receipt Date: 20250714
  Transmission Date: 20251020
  Serious: Yes (Hospitalization, Other)
  Sender: MYLAN
  Company Number: CA-MYLANLABS-2025M1057903

PATIENT
  Age: 2 Year
  Sex: Female
  Weight: 12 kg

DRUGS (32)
  1. PHENYTOIN [Suspect]
     Active Substance: PHENYTOIN
     Indication: Seizure
  2. PHENYTOIN [Suspect]
     Active Substance: PHENYTOIN
     Route: 042
  3. PHENYTOIN [Suspect]
     Active Substance: PHENYTOIN
     Route: 042
  4. PHENYTOIN [Suspect]
     Active Substance: PHENYTOIN
  5. LORAZEPAM [Suspect]
     Active Substance: LORAZEPAM
     Indication: Seizure
  6. LORAZEPAM [Suspect]
     Active Substance: LORAZEPAM
     Route: 042
  7. LORAZEPAM [Suspect]
     Active Substance: LORAZEPAM
     Route: 042
  8. LORAZEPAM [Suspect]
     Active Substance: LORAZEPAM
  9. LEVETIRACETAM [Suspect]
     Active Substance: LEVETIRACETAM
     Indication: Seizure
  10. LEVETIRACETAM [Suspect]
     Active Substance: LEVETIRACETAM
     Route: 042
  11. LEVETIRACETAM [Suspect]
     Active Substance: LEVETIRACETAM
     Route: 042
  12. LEVETIRACETAM [Suspect]
     Active Substance: LEVETIRACETAM
  13. ACYCLOVIR [Concomitant]
     Active Substance: ACYCLOVIR
  14. ACYCLOVIR [Concomitant]
     Active Substance: ACYCLOVIR
     Route: 065
  15. ACYCLOVIR [Concomitant]
     Active Substance: ACYCLOVIR
     Route: 065
  16. ACYCLOVIR [Concomitant]
     Active Substance: ACYCLOVIR
  17. CEFOTAXIME [Concomitant]
     Active Substance: CEFOTAXIME SODIUM
  18. CEFOTAXIME [Concomitant]
     Active Substance: CEFOTAXIME SODIUM
     Route: 065
  19. CEFOTAXIME [Concomitant]
     Active Substance: CEFOTAXIME SODIUM
     Route: 065
  20. CEFOTAXIME [Concomitant]
     Active Substance: CEFOTAXIME SODIUM
  21. EPINEPHRINE [Concomitant]
     Active Substance: EPINEPHRINE
  22. EPINEPHRINE [Concomitant]
     Active Substance: EPINEPHRINE
     Route: 065
  23. EPINEPHRINE [Concomitant]
     Active Substance: EPINEPHRINE
     Route: 065
  24. EPINEPHRINE [Concomitant]
     Active Substance: EPINEPHRINE
  25. FENTANYL [Concomitant]
     Active Substance: FENTANYL
  26. FENTANYL [Concomitant]
     Active Substance: FENTANYL
     Route: 065
  27. FENTANYL [Concomitant]
     Active Substance: FENTANYL
     Route: 065
  28. FENTANYL [Concomitant]
     Active Substance: FENTANYL
  29. MIDAZOLAM [Concomitant]
     Active Substance: MIDAZOLAM
  30. MIDAZOLAM [Concomitant]
     Active Substance: MIDAZOLAM
     Route: 065
  31. MIDAZOLAM [Concomitant]
     Active Substance: MIDAZOLAM
     Route: 065
  32. MIDAZOLAM [Concomitant]
     Active Substance: MIDAZOLAM

REACTIONS (3)
  - Hypoventilation [Recovered/Resolved]
  - Endotracheal intubation [Recovered/Resolved]
  - Oxygen saturation decreased [Recovered/Resolved]
